FAERS Safety Report 10165359 (Version 1)
Quarter: 2014Q2

REPORT INFORMATION
  Report Type: Spontaneous
  Country: US (occurrence: US)
  Receive Date: 20140510
  Receipt Date: 20140510
  Transmission Date: 20141212
  Serious: No
  Sender: FDA-Public Use
  Company Number: US-BRISTOL-MYERS SQUIBB COMPANY-20410213

PATIENT
  Age: 71 Year
  Sex: Female
  Weight: 102.94 kg

DRUGS (6)
  1. BYDUREON [Suspect]
     Indication: TYPE 2 DIABETES MELLITUS
     Route: 058
     Dates: start: 20140121
  2. ATIVAN [Concomitant]
  3. GABAPENTIN [Concomitant]
  4. LEVOTHYROXINE [Concomitant]
  5. LOSARTAN [Concomitant]
  6. ZOLOFT [Concomitant]

REACTIONS (9)
  - Diarrhoea [Unknown]
  - Headache [Unknown]
  - Injection site mass [Unknown]
  - Nausea [Unknown]
  - Neck pain [Unknown]
  - Weight decreased [Unknown]
  - Pain in extremity [Unknown]
  - Myalgia [Unknown]
  - Decreased appetite [Unknown]
